FAERS Safety Report 6307531-8 (Version None)
Quarter: 2009Q3

REPORT INFORMATION
  Report Type: 
  Country: None (occurrence: None)
  Receive Date: 20090811
  Receipt Date: 20090730
  Transmission Date: 20100115
  Serious: Yes (Life-Threatening, Hospitalization)
  Sender: FDA-Public Use
  Company Number: 430008K09USA

PATIENT
  Age: 55 Year
  Sex: Male
  Weight: 83 kg

DRUGS (14)
  1. NOVANTRONE [Suspect]
     Indication: MULTIPLE SCLEROSIS
     Dosage: 12 MG/M2, 1 IN 3 MONTHS, INTRAVENOUS (NOT OTHERWISE SPECIFIED)
     Route: 042
     Dates: start: 20060713, end: 20080201
  2. COPAXONE [Suspect]
     Indication: MULTIPLE SCLEROSIS
     Dosage: 20 MCG, 1 IN 1 DAYS, SUBCUTANEOUS
     Route: 057
     Dates: start: 20000103
  3. BACLOFEN [Concomitant]
  4. CALCIUM (CALCIUM-SANDOZ /00009901/) [Concomitant]
  5. VITAMIN D [Concomitant]
  6. LOPID [Concomitant]
  7. PROVIGIL [Concomitant]
  8. TIZANIDINE HCL [Concomitant]
  9. OMEPRAZOLE [Concomitant]
  10. CLONIDINE [Concomitant]
  11. GLUCOSAMINE HYDROCHORIDE (GLUCOSAMINE HYDROCHLORIDE) [Concomitant]
  12. CHONDROITIN SULFATE (CHONDROITIN SULFATE) [Concomitant]
  13. NORTRIPTYLINE (NORTRIPTYLINE /00006501/) [Concomitant]
  14. OXYCODONE HCL [Concomitant]

REACTIONS (5)
  - ACUTE PROMYELOCYTIC LEUKAEMIA [None]
  - BLOOD CHOLESTEROL INCREASED [None]
  - MUSCLE SPASTICITY [None]
  - NEURALGIA [None]
  - PAIN [None]
